FAERS Safety Report 9334959 (Version 1)
Quarter: 2013Q2

REPORT INFORMATION
  Report Type: Spontaneous
  Country: US (occurrence: US)
  Receive Date: 20130606
  Receipt Date: 20130606
  Transmission Date: 20140414
  Serious: No
  Sender: FDA-Public Use
  Company Number: US-AMGEN-USASP2013037239

PATIENT
  Age: 87 Year
  Sex: Female

DRUGS (3)
  1. PROLIA [Suspect]
     Indication: OSTEOPOROSIS POSTMENOPAUSAL
     Dosage: UNK UNK, Q6MO
     Dates: start: 20130327
  2. VITAMIN D                          /00107901/ [Concomitant]
  3. CALTRATE                           /00944201/ [Concomitant]
     Dosage: 2 UNK, UNK

REACTIONS (8)
  - Asthenia [Unknown]
  - Muscular weakness [Not Recovered/Not Resolved]
  - Burning sensation [Unknown]
  - Blister [Unknown]
  - Dysgraphia [Unknown]
  - Arthritis [Unknown]
  - Muscle spasms [Unknown]
  - Local swelling [Unknown]
